FAERS Safety Report 12158053 (Version 1)
Quarter: 2016Q1

REPORT INFORMATION
  Report Type: Spontaneous
  Country: US (occurrence: US)
  Receive Date: 20160308
  Receipt Date: 20160308
  Transmission Date: 20160526
  Serious: Yes (Hospitalization)
  Sender: FDA-Public Use
  Company Number: US-JNJFOC-20150118575

PATIENT
  Age: 80 Year
  Sex: Male

DRUGS (2)
  1. IMBRUVICA [Suspect]
     Active Substance: IBRUTINIB
     Indication: CHRONIC LYMPHOCYTIC LEUKAEMIA
     Dosage: 3 TABLETS
     Route: 048
     Dates: start: 20140414, end: 20140806
  2. BABY ASPIRIN [Concomitant]
     Active Substance: ASPIRIN

REACTIONS (6)
  - Haemoglobin decreased [Unknown]
  - Swelling [Unknown]
  - Sensory loss [Unknown]
  - Nerve compression [Unknown]
  - Haematoma [Unknown]
  - Renal failure [Unknown]

NARRATIVE: CASE EVENT DATE: 201408
